FAERS Safety Report 6269260-9 (Version None)
Quarter: 2009Q3

REPORT INFORMATION
  Report Type: 
  Country: None (occurrence: None)
  Receive Date: 20090713
  Receipt Date: 20090702
  Transmission Date: 20100115
  Serious: Yes (Other)
  Sender: FDA-Public Use
  Company Number: SPV1-2009-01280

PATIENT
  Age: 13 Year
  Sex: Male
  Weight: 22 kg

DRUGS (1)
  1. ELAPRASE [Suspect]
     Indication: MUCOPOLYSACCHARIDOSIS II
     Dosage: 6 ML, 1X/WEEK, IV DRIP
     Route: 041
     Dates: start: 20080626

REACTIONS (4)
  - ASPIRATION [None]
  - CYANOSIS [None]
  - GASTROOESOPHAGEAL REFLUX DISEASE [None]
  - HYPOXIA [None]
